FAERS Safety Report 15478949 (Version 2)
Quarter: 2018Q4

REPORT INFORMATION
  Report Type: Spontaneous
  Country: JP (occurrence: JP)
  Receive Date: 20181009
  Receipt Date: 20181220
  Transmission Date: 20190205
  Serious: Yes (Death, Hospitalization)
  Sender: FDA-Public Use
  Company Number: JP-DSJP-DSJ-2018-142642AA

PATIENT

DRUGS (3)
  1. CALFINA [Concomitant]
     Active Substance: ALFACALCIDOL
     Dosage: 1 MG
     Route: 065
  2. CANDESARTAN                        /01349502/ [Concomitant]
     Active Substance: CANDESARTAN
     Dosage: 2 MG
     Route: 065
  3. LIXIANA TABLETS [Suspect]
     Active Substance: EDOXABAN TOSYLATE
     Indication: ATRIAL FIBRILLATION
     Dosage: 15 MG, QD
     Route: 048
     Dates: start: 20160819

REACTIONS (3)
  - Upper gastrointestinal haemorrhage [Fatal]
  - Aortic aneurysm rupture [Fatal]
  - Underdose [Unknown]

NARRATIVE: CASE EVENT DATE: 20170206
